FAERS Safety Report 7297569-9 (Version None)
Quarter: 2011Q1

REPORT INFORMATION
  Report Type: 
  Country: None (occurrence: None)
  Receive Date: 20110216
  Receipt Date: 20110202
  Transmission Date: 20110831
  Serious: Yes (Death, Other)
  Sender: FDA-Public Use
  Company Number: US-CELGENEUS-163-21880-11013020

PATIENT
  Sex: Female

DRUGS (15)
  1. REVLIMID [Suspect]
     Indication: MULTIPLE MYELOMA
     Route: 048
     Dates: start: 20100201, end: 20100501
  2. LEVOTHYROXINE SODIUM [Concomitant]
     Route: 065
  3. MORPHINE [Concomitant]
     Route: 065
  4. REVLIMID [Suspect]
     Route: 048
     Dates: start: 20100625, end: 20100629
  5. DEXAMETHASONE [Concomitant]
     Route: 065
  6. CALCITONIN [Concomitant]
     Route: 065
  7. FORTICAL [Concomitant]
     Route: 065
  8. MAGNESIUM OXIDE [Concomitant]
     Indication: BONE PAIN
     Route: 065
  9. PERCOCET [Concomitant]
     Indication: BONE PAIN
     Route: 065
  10. CHLORPHENIRAMINE MALEATE [Concomitant]
     Route: 065
  11. METOPROLOL TARTRATE [Concomitant]
     Route: 065
  12. ZOLPIDEM [Concomitant]
     Route: 065
  13. DIGOXIN [Concomitant]
     Route: 065
  14. OMEPRAZOLE [Concomitant]
     Route: 065
  15. INSULIN [Concomitant]
     Route: 065

REACTIONS (10)
  - RENAL FAILURE ACUTE [None]
  - DEATH [None]
  - MENTAL STATUS CHANGES [None]
  - HEPATIC FAILURE [None]
  - ACUTE MYOCARDIAL INFARCTION [None]
  - LETHARGY [None]
  - APHAGIA [None]
  - THROMBOCYTOPENIA [None]
  - CONFUSIONAL STATE [None]
  - MUSCULOSKELETAL CHEST PAIN [None]
